FAERS Safety Report 10263164 (Version 2)
Quarter: 2014Q2

REPORT INFORMATION
  Report Type: Report from Study
  Country: US (occurrence: US)
  Receive Date: 20140626
  Receipt Date: 20140626
  Transmission Date: 20141212
  Serious: Yes (Other)
  Sender: FDA-Public Use
  Company Number: US-MYLANLABS-2014S1004014

PATIENT
  Age: 72 Year
  Sex: Female
  Weight: 46.72 kg

DRUGS (8)
  1. CLOZAPINE TABLETS [Suspect]
     Indication: SCHIZOPHRENIA
     Route: 048
     Dates: start: 20131125, end: 20140410
  2. CLOZAPINE TABLETS [Suspect]
     Indication: SCHIZOAFFECTIVE DISORDER
     Route: 048
     Dates: start: 20131125, end: 20140410
  3. CLOZAPINE TABLETS [Suspect]
     Indication: SCHIZOPHRENIA
     Route: 048
     Dates: start: 20140415
  4. CLOZAPINE TABLETS [Suspect]
     Indication: SCHIZOAFFECTIVE DISORDER
     Route: 048
     Dates: start: 20140415
  5. HALDOL [Concomitant]
     Dosage: CROSS TAPER FROM HALDOL 17.5MG QHS TO 5MG QHS
     Dates: end: 20140331
  6. PAROXETINE [Concomitant]
  7. LORAZEPAM [Concomitant]
  8. BENZTROPINE [Concomitant]

REACTIONS (1)
  - Granulocytopenia [Recovered/Resolved]
